FAERS Safety Report 6661857-7 (Version None)
Quarter: 2010Q1

REPORT INFORMATION
  Report Type: 
  Country: None (occurrence: None)
  Receive Date: 20100331
  Receipt Date: 20090825
  Transmission Date: 20100710
  Serious: No
  Sender: FDA-Public Use
  Company Number: US-BRISTOL-MYERS SQUIBB COMPANY-14742217

PATIENT
  Age: 72 Year
  Sex: Female

DRUGS (1)
  1. ERBITUX [Suspect]
     Indication: COLON CANCER STAGE IV
     Dosage: START:04APR08, RECEIVED ALSO-02OCT2008, RESTART-750(LEADIND DOSE)ON 06MAY09+MAINTAINED AT 450MG/WK.
     Route: 042
     Dates: start: 20080404

REACTIONS (1)
  - HYPOMAGNESAEMIA [None]
